FAERS Safety Report 4316896-8 (Version None)
Quarter: 2004Q1

REPORT INFORMATION
  Report Type: 
  Country: None (occurrence: None)
  Receive Date: 20040308
  Receipt Date: 20031113
  Transmission Date: 20041129
  Serious: Yes (Hospitalization)
  Sender: FDA-Public Use
  Company Number: PHEH2003US10481

PATIENT
  Age: 55 Year
  Sex: Male

DRUGS (5)
  1. GLEEVEC [Suspect]
     Indication: CHRONIC MYELOID LEUKAEMIA
     Dosage: 400 MG, QD, ORAL
     Route: 048
     Dates: start: 20021101
  2. WARFARIN SODIUM [Concomitant]
  3. METOPROLOL [Concomitant]
  4. RABEPRAZOLE SODIUM [Concomitant]
  5. FERROUS SULFATE TAB [Concomitant]

REACTIONS (7)
  - DIZZINESS [None]
  - DYSPNOEA EXERTIONAL [None]
  - GASTRITIS [None]
  - GASTROINTESTINAL HAEMORRHAGE [None]
  - HIATUS HERNIA [None]
  - IRON DEFICIENCY ANAEMIA [None]
  - MELAENA [None]
